FAERS Safety Report 6599482-9 (Version None)
Quarter: 2010Q1

REPORT INFORMATION
  Report Type: 
  Country: None (occurrence: None)
  Receive Date: 20100212
  Receipt Date: 20100115
  Transmission Date: 20100710
  Serious: No
  Sender: FDA-Public Use
  Company Number: 2010-00054

PATIENT
  Age: 66 Year
  Sex: Female
  Weight: 63.5036 kg

DRUGS (3)
  1. COLD REMEDY ORAL MIST [Suspect]
  2. ZICAM ORAL PRODUCTS [Suspect]
  3. HYDROCHLOROTHYAZIDE [Concomitant]

REACTIONS (1)
  - AGEUSIA [None]
